FAERS Safety Report 5327092-X (Version None)
Quarter: 2007Q2

REPORT INFORMATION
  Report Type: 
  Country: None (occurrence: None)
  Receive Date: 20070517
  Receipt Date: 20070502
  Transmission Date: 20071010
  Serious: Yes (Other)
  Sender: FDA-Public Use
  Company Number: US-JNJFOC-20070503240

PATIENT
  Sex: Female
  Weight: 77.11 kg

DRUGS (3)
  1. MOTRIN [Suspect]
     Indication: PROCEDURAL PAIN
  2. CHANTIX [Suspect]
     Indication: SMOKING CESSATION THERAPY
  3. ACETAMINOPHEN AND HYDROCODONE BITARTRATE [Concomitant]
     Indication: PROCEDURAL PAIN

REACTIONS (2)
  - CHEST DISCOMFORT [None]
  - INCISION SITE PAIN [None]
